FAERS Safety Report 9996696 (Version 1)
Quarter: 2014Q1

REPORT INFORMATION
  Report Type: Spontaneous
  Country: US (occurrence: US)
  Receive Date: 20140311
  Receipt Date: 20140311
  Transmission Date: 20141002
  Serious: No
  Sender: FDA-Public Use
  Company Number: US-GLAXOSMITHKLINE-A1014709A

PATIENT
  Age: 32 Year
  Sex: Female

DRUGS (3)
  1. NICORETTE MINT OTC 4MG [Suspect]
     Indication: EX-TOBACCO USER
     Dates: start: 20130301
  2. NICODERM CQ CLEAR 21MG [Suspect]
     Indication: EX-TOBACCO USER
  3. NICODERM CQ CLEAR 14MG [Suspect]
     Indication: EX-TOBACCO USER

REACTIONS (9)
  - Toothache [Not Recovered/Not Resolved]
  - Drug administration error [Unknown]
  - Nausea [Recovered/Resolved]
  - Restlessness [Recovered/Resolved]
  - Abnormal dreams [Recovered/Resolved]
  - Insomnia [Recovered/Resolved]
  - Pain in extremity [Recovered/Resolved]
  - Feeling hot [Recovered/Resolved]
  - Drug ineffective [Unknown]
